FAERS Safety Report 12084808 (Version 1)
Quarter: 2016Q1

REPORT INFORMATION
  Report Type: Spontaneous
  Country: FR (occurrence: FR)
  Receive Date: 20160217
  Receipt Date: 20160217
  Transmission Date: 20160526
  Serious: Yes (Death, Life-Threatening, Hospitalization, Disabling, Other)
  Sender: FDA-Public Use
  Company Number: FR-ASTRAZENECA-2016SE15542

PATIENT
  Age: 18672 Day
  Sex: Female

DRUGS (13)
  1. LEVOTHYROX [Concomitant]
     Active Substance: LEVOTHYROXINE
     Indication: HYPOTHYROIDISM
     Route: 048
     Dates: start: 20140517
  2. TEMESTA [Concomitant]
     Active Substance: LORAZEPAM
     Indication: ANXIETY
     Route: 048
     Dates: start: 20140715
  3. TRANSIPEG [Concomitant]
     Active Substance: POLYETHYLENE GLYCOL 3350
     Dosage: 2 DF IN THE MORNING AND IN THE EVENING
  4. UVEDOSE [Concomitant]
     Active Substance: CHOLECALCIFEROL
     Dosage: ONE VIAL EVERY 28 DAYS FOR 90 DAYS
  5. CERIS [Suspect]
     Active Substance: TROSPIUM CHLORIDE
     Indication: URINARY INCONTINENCE
     Route: 065
     Dates: start: 20140516
  6. TERALITHE [Concomitant]
     Active Substance: LITHIUM CARBONATE
     Indication: BIPOLAR I DISORDER
     Route: 048
     Dates: start: 20140723
  7. XEROQUEL [Suspect]
     Active Substance: QUETIAPINE FUMARATE
     Indication: PSYCHOTIC DISORDER
     Route: 048
     Dates: start: 20140630
  8. PROTHIADEN [Suspect]
     Active Substance: DOTHIEPIN HYDROCHLORIDE
     Indication: DEPRESSION
     Route: 048
     Dates: start: 20140515
  9. LAMOTRIGINE. [Concomitant]
     Active Substance: LAMOTRIGINE
     Route: 048
     Dates: start: 20140715, end: 20140723
  10. TERALITHE [Concomitant]
     Active Substance: LITHIUM CARBONATE
     Indication: BIPOLAR I DISORDER
     Route: 048
     Dates: end: 20140723
  11. NOCTAMIDE [Concomitant]
     Active Substance: LORMETAZEPAM
     Indication: SLEEP DISORDER
     Route: 048
     Dates: start: 20140515
  12. SULFARLEM [Concomitant]
     Active Substance: ANETHOLTRITHION
     Indication: DEFICIENCY OF BILE SECRETION
     Route: 048
  13. GILENYA [Concomitant]
     Active Substance: FINGOLIMOD HYDROCHLORIDE
     Indication: MULTIPLE SCLEROSIS
     Route: 048
     Dates: start: 20140517

REACTIONS (8)
  - Acute kidney injury [Unknown]
  - Azotaemia [Unknown]
  - Gamma-glutamyltransferase increased [Unknown]
  - Abdominal pain [Fatal]
  - Faecaloma [Fatal]
  - Pyelonephritis [Unknown]
  - White blood cell count increased [Unknown]
  - Intestinal obstruction [Fatal]

NARRATIVE: CASE EVENT DATE: 20140801
